FAERS Safety Report 9332100 (Version 2)
Quarter: 2013Q2

REPORT INFORMATION
  Report Type: Spontaneous
  Country: US (occurrence: US)
  Receive Date: 20130606
  Receipt Date: 20130618
  Transmission Date: 20140414
  Serious: Yes (Hospitalization)
  Sender: FDA-Public Use
  Company Number: US-AMGEN-USASP2013039618

PATIENT
  Age: 73 Year
  Sex: Male

DRUGS (1)
  1. ENBREL [Suspect]
     Indication: RHEUMATOID ARTHRITIS
     Dosage: 25 MG, 2 TIMES/WK
     Route: 065
     Dates: start: 20001201, end: 201004

REACTIONS (4)
  - Knee arthroplasty [Recovered/Resolved]
  - Staphylococcal infection [Not Recovered/Not Resolved]
  - Infection [Recovered/Resolved]
  - Arthropathy [Recovered/Resolved]
